FAERS Safety Report 14233699 (Version 1)
Quarter: 2017Q4

REPORT INFORMATION
  Report Type: Spontaneous
  Country: PL (occurrence: PL)
  Receive Date: 20171129
  Receipt Date: 20171129
  Transmission Date: 20180321
  Serious: Yes (Other)
  Sender: FDA-Public Use
  Company Number: PL-APOTEX-2017AP022197

PATIENT
  Sex: Male

DRUGS (1)
  1. CYCLOSPORINE. [Suspect]
     Active Substance: CYCLOSPORINE
     Indication: NEPHROTIC SYNDROME
     Dosage: 2 X 0.3 ML
     Route: 065

REACTIONS (9)
  - Toxicity to various agents [Unknown]
  - Glycosuria [Unknown]
  - Hypertrichosis [Unknown]
  - Hypertension [Recovered/Resolved]
  - Obesity [Recovered/Resolved]
  - Blood magnesium decreased [Unknown]
  - Blood uric acid increased [Unknown]
  - Knee deformity [Unknown]
  - Gingival hypertrophy [Unknown]
